FAERS Safety Report 6401470-X (Version None)
Quarter: 2009Q4

REPORT INFORMATION
  Report Type: 
  Country: None (occurrence: None)
  Receive Date: 20091015
  Receipt Date: 20091009
  Transmission Date: 20100525
  Serious: Yes (Hospitalization)
  Sender: FDA-Public Use
  Company Number: GB-BRISTOL-MYERS SQUIBB COMPANY-14786511

PATIENT
  Age: 82 Year
  Sex: Female
  Weight: 66 kg

DRUGS (9)
  1. ABILIFY [Suspect]
     Indication: AGITATION
     Dosage: 5MG(20AUG-27AUG09),10MG FROM 27AUG-02SEP09,15MG FROM 02SEP09-23SEP09(BAT NO 9E51816,EXP DT 2012)
     Route: 048
     Dates: start: 20090820, end: 20090923
  2. ABILIFY [Suspect]
     Indication: DELUSION
     Dosage: 5MG(20AUG-27AUG09),10MG FROM 27AUG-02SEP09,15MG FROM 02SEP09-23SEP09(BAT NO 9E51816,EXP DT 2012)
     Route: 048
     Dates: start: 20090820, end: 20090923
  3. BENZODIAZEPINE [Suspect]
  4. DIAZEPAM [Suspect]
     Route: 048
     Dates: start: 20090827, end: 20090902
  5. ASPIRIN [Concomitant]
     Indication: HYPERTENSION
  6. FENOFIBRATE [Concomitant]
     Indication: BLOOD CHOLESTEROL INCREASED
  7. OMEPRAZOLE [Concomitant]
     Indication: PROPHYLAXIS
  8. COSOPT [Concomitant]
     Indication: GLAUCOMA
  9. BIMATOPROST [Concomitant]
     Indication: GLAUCOMA
     Dosage: BIMATOPROST EYE DROPS

REACTIONS (10)
  - AGITATION [None]
  - BLUNTED AFFECT [None]
  - CONFUSIONAL STATE [None]
  - FAECAL INCONTINENCE [None]
  - FALL [None]
  - FATIGUE [None]
  - INSOMNIA [None]
  - PSYCHOMOTOR HYPERACTIVITY [None]
  - SEDATION [None]
  - URINARY INCONTINENCE [None]
